FAERS Safety Report 26121056 (Version 1)
Quarter: 2025Q4

REPORT INFORMATION
  Report Type: Spontaneous
  Country: US (occurrence: US)
  Receive Date: 20251204
  Receipt Date: 20251204
  Transmission Date: 20260118
  Serious: No
  Sender: BLUEPRINT MEDICINES
  Company Number: US-Blueprint Medicines Corporation-2025-AER-02600

PATIENT
  Age: 45 Year
  Sex: Female

DRUGS (1)
  1. AYVAKIT [Suspect]
     Active Substance: AVAPRITINIB
     Indication: Mastocytoma
     Route: 065
     Dates: start: 20240522

REACTIONS (7)
  - Hair colour changes [Unknown]
  - Poor peripheral circulation [Unknown]
  - Hypoaesthesia [Unknown]
  - Middle insomnia [Unknown]
  - Paraesthesia [Unknown]
  - Peripheral coldness [Unknown]
  - Pain in extremity [Unknown]
